FAERS Safety Report 8909315 (Version 2)
Quarter: 2013Q1

REPORT INFORMATION
  Report Type: Spontaneous
  Country: US (occurrence: None)
  Receive Date: 20121102
  Receipt Date: 20130103
  Transmission Date: 20140127
  Serious: Yes (Life-Threatening)
  Sender: FDA-Public Use
  Company Number: 003-097

PATIENT
  Age: 59 Year
  Sex: Male

DRUGS (1)
  1. CROFAB [Suspect]
     Indication: SNAKE BITE
     Dosage: 5 VIALS TOTAL
     Dates: start: 20121018, end: 20121018

REACTIONS (5)
  - Laryngeal oedema [None]
  - Stridor [None]
  - Respiratory failure [None]
  - Hypotension [None]
  - Anaphylactic reaction [None]
